FAERS Safety Report 19077391 (Version 1)
Quarter: 2021Q1

REPORT INFORMATION
  Report Type: Spontaneous
  Country: US (occurrence: US)
  Receive Date: 20210330
  Receipt Date: 20210330
  Transmission Date: 20210420
  Serious: Yes (Hospitalization)
  Sender: FDA-Public Use
  Company Number: None

PATIENT
  Sex: Female

DRUGS (21)
  1. XELJANZ XR [Suspect]
     Active Substance: TOFACITINIB CITRATE
     Indication: RHEUMATOID ARTHRITIS
     Route: 048
     Dates: start: 20180307
  2. KLOR?CON [Concomitant]
     Active Substance: POTASSIUM CHLORIDE
  3. METOPROL TAR [Concomitant]
  4. PREDNISONE. [Concomitant]
     Active Substance: PREDNISONE
  5. FLUOXETINE [Concomitant]
     Active Substance: FLUOXETINE HYDROCHLORIDE
  6. ALBUTEROL HFA [Concomitant]
     Active Substance: ALBUTEROL SULFATE
  7. FENOFIBRATE. [Concomitant]
     Active Substance: FENOFIBRATE
  8. LEVOCETIRIZI [Concomitant]
  9. PROMETHAZINE [Concomitant]
     Active Substance: PROMETHAZINE HYDROCHLORIDE
  10. ARIPIPRAZOLE. [Concomitant]
     Active Substance: ARIPIPRAZOLE
  11. FUROSEMIDE. [Concomitant]
     Active Substance: FUROSEMIDE
  12. SYMBICORT [Concomitant]
     Active Substance: BUDESONIDE\FORMOTEROL FUMARATE DIHYDRATE
  13. ANUCORT?HC [Concomitant]
     Active Substance: HYDROCORTISONE ACETATE
  14. DULOXETINE. [Concomitant]
     Active Substance: DULOXETINE
  15. METHOCARBAM [Concomitant]
     Active Substance: METHOCARBAMOL
  16. LEFUNOMIDE [Concomitant]
     Active Substance: LEFLUNOMIDE
  17. POT CHLORIDE ER [Concomitant]
  18. PREGABALIN. [Concomitant]
     Active Substance: PREGABALIN
  19. METHYLPRED [Concomitant]
     Active Substance: METHYLPREDNISOLONE
  20. ALBUTEROL NEB [Concomitant]
     Active Substance: ALBUTEROL
  21. BENAZEPRIL [Concomitant]
     Active Substance: BENAZEPRIL HYDROCHLORIDE

REACTIONS (1)
  - COVID-19 [None]
